FAERS Safety Report 14070084 (Version 1)
Quarter: 2017Q4

REPORT INFORMATION
  Report Type: Spontaneous
  Country: US (occurrence: None)
  Receive Date: 20171010
  Receipt Date: 20171010
  Transmission Date: 20180321
  Serious: No
  Sender: FDA-Public Use
  Company Number: None

PATIENT
  Sex: Female

DRUGS (1)
  1. CEFDINIR. [Suspect]
     Active Substance: CEFDINIR

REACTIONS (8)
  - Urinary tract infection [None]
  - Product label issue [None]
  - Drug effect incomplete [None]
  - Drug resistance [None]
  - Pyelonephritis [None]
  - Product reconstitution quality issue [None]
  - Underdose [None]
  - Product preparation error [None]

NARRATIVE: CASE EVENT DATE: 2017
